FAERS Safety Report 9136028 (Version 1)
Quarter: 2013Q1

REPORT INFORMATION
  Report Type: Spontaneous
  Country: US (occurrence: US)
  Receive Date: 20130219
  Receipt Date: 20130219
  Transmission Date: 20140127
  Serious: No
  Sender: FDA-Public Use
  Company Number: US-BRISTOL-MYERS SQUIBB COMPANY-16481871

PATIENT
  Age: 45 Year
  Sex: Female

DRUGS (1)
  1. ORENCIA [Suspect]
     Dosage: LAST INJECTION ON:22MAR2012?1 DOSE
     Route: 042
     Dates: start: 20120315

REACTIONS (5)
  - Rash [Unknown]
  - Headache [Unknown]
  - Malaise [Unknown]
  - Dizziness [Unknown]
  - Arthralgia [Unknown]
